FAERS Safety Report 9478073 (Version 1)
Quarter: 2013Q3

REPORT INFORMATION
  Report Type: Spontaneous
  Country: BR (occurrence: BR)
  Receive Date: 20130827
  Receipt Date: 20130827
  Transmission Date: 20140515
  Serious: Yes (Hospitalization)
  Sender: FDA-Public Use
  Company Number: BR-MERCK-1308BRA011383

PATIENT
  Sex: Male

DRUGS (3)
  1. VICTRELIS [Suspect]
     Indication: HEPATITIS
     Dosage: 800 MG, TID
     Route: 048
  2. PEGINTRON [Suspect]
     Indication: HEPATITIS
     Dosage: 0.7 ML, QW
     Route: 058
  3. RIBAVIRIN [Concomitant]
     Indication: HEPATITIS
     Dosage: 1250 MG, QD
     Route: 048

REACTIONS (1)
  - Mental disorder [Unknown]
